FAERS Safety Report 17320493 (Version 1)
Quarter: 2020Q1

REPORT INFORMATION
  Report Type: Other
  Country: US (occurrence: US)
  Receive Date: 20200126
  Receipt Date: 20200126
  Transmission Date: 20200409
  Serious: No
  Sender: FDA-Public Use
  Company Number: US-ACORDA-ACO_157611_2019

PATIENT
  Sex: Female
  Weight: 68.55 kg

DRUGS (9)
  1. TECFIDERA [Suspect]
     Active Substance: DIMETHYL FUMARATE
     Dosage: MAINTENANCE DOSE OF 240MG TWICE DIALY
     Route: 048
  2. LOVASTATIN. [Concomitant]
     Active Substance: LOVASTATIN
     Indication: PRODUCT USED FOR UNKNOWN INDICATION
     Dosage: 40MG QD WITH MEAL
     Route: 048
  3. COPAXONE [Concomitant]
     Active Substance: GLATIRAMER ACETATE
     Indication: PRODUCT USED FOR UNKNOWN INDICATION
     Dosage: 20 MG/ML, QD
     Route: 058
  4. CYMBALTA [Concomitant]
     Active Substance: DULOXETINE HYDROCHLORIDE
     Indication: PRODUCT USED FOR UNKNOWN INDICATION
     Dosage: 60 MILLIGRAM, QD
     Route: 048
  5. GABAPENTIN. [Concomitant]
     Active Substance: GABAPENTIN
     Indication: PRODUCT USED FOR UNKNOWN INDICATION
     Dosage: 300 MILLIGRAM, TID
     Route: 048
  6. LORAZEPAM. [Concomitant]
     Active Substance: LORAZEPAM
     Indication: PRODUCT USED FOR UNKNOWN INDICATION
     Dosage: 1 MILLIGRAM, BID
     Route: 048
  7. AMPYRA [Suspect]
     Active Substance: DALFAMPRIDINE
     Indication: PRODUCT USED FOR UNKNOWN INDICATION
     Dosage: 10 MILLIGRAM, BID
     Route: 048
  8. TECFIDERA [Suspect]
     Active Substance: DIMETHYL FUMARATE
     Indication: SECONDARY PROGRESSIVE MULTIPLE SCLEROSIS
     Dosage: STARTING DOSE OF 120MG TIWCE DAILY
     Route: 048
  9. LEVOTHYROXINE SODIUM. [Concomitant]
     Active Substance: LEVOTHYROXINE SODIUM
     Indication: PRODUCT USED FOR UNKNOWN INDICATION
     Dosage: 25 MCG EVERY MORNING ON AN EMPTY STOMACH
     Route: 048

REACTIONS (31)
  - Weight fluctuation [Unknown]
  - Hyperhidrosis [Unknown]
  - Nasal congestion [Unknown]
  - Fall [Recovered/Resolved]
  - Back pain [Unknown]
  - Gait disturbance [Unknown]
  - Pollakiuria [Unknown]
  - Paraparesis [Unknown]
  - Memory impairment [Unknown]
  - Extensor plantar response [Unknown]
  - Hypoaesthesia [Unknown]
  - Muscular weakness [Unknown]
  - Chills [Unknown]
  - Pain in extremity [Unknown]
  - Pyrexia [Unknown]
  - Eye pruritus [Unknown]
  - Constipation [Unknown]
  - Dizziness [Unknown]
  - Rhinorrhoea [Unknown]
  - Sensory loss [Unknown]
  - Optic atrophy [Unknown]
  - Neurological examination abnormal [Unknown]
  - Arthralgia [Unknown]
  - Fatigue [Unknown]
  - Balance disorder [Unknown]
  - Somnolence [Unknown]
  - Tremor [Unknown]
  - Muscle spasms [Unknown]
  - Myelopathy [Unknown]
  - Asthenia [Unknown]
  - Coordination abnormal [Unknown]
